FAERS Safety Report 8800271 (Version 3)
Quarter: 2013Q1

REPORT INFORMATION
  Report Type: Spontaneous
  Country: DE (occurrence: DE)
  Receive Date: 20120921
  Receipt Date: 20130301
  Transmission Date: 20140127
  Serious: Yes (Hospitalization)
  Sender: FDA-Public Use
  Company Number: DE-BIOGENIDEC-2012BI037325

PATIENT
  Age: 58 Year
  Sex: Female
  Weight: 99 kg

DRUGS (6)
  1. AVONEX [Suspect]
     Indication: MULTIPLE SCLEROSIS
     Route: 030
     Dates: start: 20061201, end: 201209
  2. AVONEX [Suspect]
     Indication: MULTIPLE SCLEROSIS
     Route: 030
     Dates: start: 201209
  3. CITALOPRAM [Concomitant]
     Indication: DEPRESSION
  4. BISOPROLOL [Concomitant]
     Indication: HYPERTENSION
  5. EUTHYROX [Concomitant]
     Indication: PRODUCT USED FOR UNKNOWN INDICATION
  6. URIVESC [Concomitant]
     Indication: INCONTINENCE

REACTIONS (3)
  - Multiple sclerosis relapse [Recovered/Resolved]
  - Upper respiratory tract infection [Recovered/Resolved]
  - Facial paresis [Recovered/Resolved]
